FAERS Safety Report 16972075 (Version 1)
Quarter: 2019Q4

REPORT INFORMATION
  Report Type: Report from Study
  Country: US (occurrence: US)
  Receive Date: 20191029
  Receipt Date: 20191029
  Transmission Date: 20200122
  Serious: Yes (Hospitalization, Other)
  Sender: FDA-Public Use
  Company Number: US-GILEAD-2019-0435103

PATIENT
  Sex: Female

DRUGS (1)
  1. AZTREONAM LYSINE [Suspect]
     Active Substance: AZTREONAM LYSINE
     Indication: CYSTIC FIBROSIS
     Dosage: 75MG/1VIAL THREE TIMES A DAY FOR 28DAY ON THEN 28DAYS OFF
     Route: 055
     Dates: start: 20150725

REACTIONS (2)
  - Condition aggravated [Recovering/Resolving]
  - Forced expiratory volume abnormal [Recovering/Resolving]
